FAERS Safety Report 8539078-2 (Version None)
Quarter: 2012Q3

REPORT INFORMATION
  Report Type: 
  Country: None (occurrence: None)
  Receive Date: 20120726
  Receipt Date: 20120723
  Transmission Date: 20120928
  Serious: Yes (Death)
  Sender: FDA-Public Use
  Company Number: PHHY2012JP061959

PATIENT
  Age: 66 Year
  Sex: Male

DRUGS (2)
  1. PREDNISOLONE [Concomitant]
     Indication: IDIOPATHIC PULMONARY FIBROSIS
  2. CYCLOSPORINE [Suspect]
     Indication: IDIOPATHIC PULMONARY FIBROSIS

REACTIONS (2)
  - DELIRIUM [None]
  - BRONCHOPULMONARY ASPERGILLOSIS [None]
